FAERS Safety Report 23070211 (Version 2)
Quarter: 2023Q4

REPORT INFORMATION
  Report Type: Report from Study
  Country: US (occurrence: US)
  Receive Date: 20231016
  Receipt Date: 20231023
  Transmission Date: 20240110
  Serious: Yes (Death)
  Sender: FDA-Public Use
  Company Number: US-BAUSCH-BL-2023-009898

PATIENT
  Age: 75 Year
  Sex: Male

DRUGS (1)
  1. XIFAXAN [Suspect]
     Active Substance: RIFAXIMIN
     Indication: Product used for unknown indication
     Route: 048
     Dates: end: 2023

REACTIONS (3)
  - Nephropathy [Fatal]
  - Hepatic cirrhosis [Fatal]
  - Arthritis [Unknown]

NARRATIVE: CASE EVENT DATE: 20230501
